FAERS Safety Report 13512838 (Version 2)
Quarter: 2017Q2

REPORT INFORMATION
  Report Type: Spontaneous
  Country: US (occurrence: US)
  Receive Date: 20170504
  Receipt Date: 20170615
  Transmission Date: 20170830
  Serious: Yes (Other)
  Sender: FDA-Public Use
  Company Number: US-ASTRAZENECA-2017SE45003

PATIENT
  Age: 40 Year
  Sex: Male
  Weight: 59.4 kg

DRUGS (2)
  1. MORPHINE [Suspect]
     Active Substance: MORPHINE
     Dosage: 30GMS 6 TIMES A DAY
     Route: 065
  2. MOVANTIK [Suspect]
     Active Substance: NALOXEGOL OXALATE
     Indication: CONSTIPATION
     Route: 048
     Dates: start: 20160830, end: 20160830

REACTIONS (3)
  - Drug withdrawal syndrome [Recovered/Resolved]
  - Neoplasm malignant [Unknown]
  - Intentional product use issue [Unknown]

NARRATIVE: CASE EVENT DATE: 20160831
